FAERS Safety Report 7819559-7 (Version None)
Quarter: 2011Q4

REPORT INFORMATION
  Report Type: 
  Country: None (occurrence: None)
  Receive Date: 20111012
  Receipt Date: 20110927
  Transmission Date: 20120403
  Serious: Yes (Disabling)
  Sender: FDA-Public Use
  Company Number: DSA_47561_2011

PATIENT
  Sex: Female

DRUGS (15)
  1. COUMADIN [Concomitant]
  2. NEXIUM [Concomitant]
  3. BYSTOLIC [Concomitant]
  4. AROMASIN [Concomitant]
  5. ALLEGRA [Concomitant]
  6. AMLODIPINE [Concomitant]
  7. VITAMIN D [Concomitant]
  8. SYNTHROID [Concomitant]
  9. SIMVASTATIN [Concomitant]
  10. AMBIEN [Concomitant]
  11. CALCIUM CARBONATE [Concomitant]
  12. LISINOPRIL [Concomitant]
  13. WELLBUTRIN XL [Suspect]
     Indication: DEPRESSION
     Dosage: 450 MG QD ORAL
     Route: 048
     Dates: start: 20110701
  14. HYDROCHLOROTHIAZIDE [Concomitant]
  15. LORAZEPAM [Concomitant]

REACTIONS (4)
  - CONDITION AGGRAVATED [None]
  - ACTIVITIES OF DAILY LIVING IMPAIRED [None]
  - DRUG LEVEL BELOW THERAPEUTIC [None]
  - DEPRESSION [None]
